FAERS Safety Report 18935210 (Version 1)
Quarter: 2021Q1

REPORT INFORMATION
  Report Type: Spontaneous
  Country: US (occurrence: US)
  Receive Date: 20210224
  Receipt Date: 20210224
  Transmission Date: 20210420
  Serious: No
  Sender: FDA-Public Use
  Company Number: US-TERSERA THERAPEUTICS LLC-2015-US-013163

PATIENT

DRUGS (6)
  1. BACLOFEN. [Suspect]
     Active Substance: BACLOFEN
     Indication: MUSCLE SPASTICITY
     Dosage: UNK ?G, QH
     Route: 037
  2. PRIALT [Suspect]
     Active Substance: ZICONOTIDE ACETATE
     Indication: MUSCLE SPASTICITY
     Dosage: UNK ?G, QH
     Route: 037
  3. PRIALT [Suspect]
     Active Substance: ZICONOTIDE ACETATE
     Indication: MULTIPLE SCLEROSIS
  4. MARCAINE [Suspect]
     Active Substance: BUPIVACAINE HYDROCHLORIDE
     Indication: MULTIPLE SCLEROSIS
  5. BACLOFEN. [Suspect]
     Active Substance: BACLOFEN
     Indication: MULTIPLE SCLEROSIS
  6. MARCAINE [Suspect]
     Active Substance: BUPIVACAINE HYDROCHLORIDE
     Indication: MUSCLE SPASTICITY
     Dosage: UNK MG, QH
     Route: 037

REACTIONS (6)
  - Pruritus [Unknown]
  - Off label use [Unknown]
  - Muscle spasticity [Unknown]
  - Withdrawal syndrome [Unknown]
  - Nausea [Unknown]
  - Device issue [Unknown]

NARRATIVE: CASE EVENT DATE: 2013
